FAERS Safety Report 13571691 (Version 2)
Quarter: 2017Q2

REPORT INFORMATION
  Report Type: Spontaneous
  Country: US (occurrence: US)
  Receive Date: 20170523
  Receipt Date: 20170523
  Transmission Date: 20170830
  Serious: Yes (Hospitalization, Other)
  Sender: FDA-Public Use
  Company Number: US-BRISTOL-MYERS SQUIBB COMPANY-BMS-2017-043072

PATIENT
  Sex: Female

DRUGS (1)
  1. IPILIMUMAB [Suspect]
     Active Substance: IPILIMUMAB
     Indication: MALIGNANT MELANOMA
     Route: 065

REACTIONS (6)
  - Urinary retention [Recovering/Resolving]
  - Mydriasis [Recovering/Resolving]
  - Nervous system disorder [Recovering/Resolving]
  - Guillain-Barre syndrome [Recovering/Resolving]
  - Orthostatic hypotension [Recovering/Resolving]
  - Gastrointestinal disorder [Recovering/Resolving]
